FAERS Safety Report 11162079 (Version 1)
Quarter: 2015Q2

REPORT INFORMATION
  Report Type: Spontaneous
  Country: US (occurrence: None)
  Receive Date: 20150603
  Receipt Date: 20150603
  Transmission Date: 20150821
  Serious: Yes (Hospitalization)
  Sender: FDA-Public Use
  Company Number: None

PATIENT
  Age: 58 Year
  Sex: Male
  Weight: 106 kg

DRUGS (15)
  1. EXPAREL [Suspect]
     Active Substance: BUPIVACAINE
     Indication: KNEE ARTHROPLASTY
     Route: 014
     Dates: start: 20150507, end: 20150507
  2. KETOROLAC [Concomitant]
     Active Substance: KETOROLAC\KETOROLAC TROMETHAMINE
  3. TRANEXAMIC ACID. [Concomitant]
     Active Substance: TRANEXAMIC ACID
  4. CEFAZOLIN [Concomitant]
     Active Substance: CEFAZOLIN
  5. MIDAZOLAM [Concomitant]
     Active Substance: MIDAZOLAM\MIDAZOLAM HYDROCHLORIDE
  6. PROPOFOL INFUSION [Concomitant]
     Active Substance: PROPOFOL
  7. DEXAMETHASONE. [Concomitant]
     Active Substance: DEXAMETHASONE
  8. ACETAMINOPHEN. [Concomitant]
     Active Substance: ACETAMINOPHEN
  9. VANCOMYCIN [Concomitant]
     Active Substance: VANCOMYCIN
  10. FENTANYL. [Concomitant]
     Active Substance: FENTANYL
  11. PANTOPRAZOLE [Concomitant]
     Active Substance: PANTOPRAZOLE SODIUM
  12. SODIUM CHLORIDE. [Concomitant]
     Active Substance: SODIUM CHLORIDE
  13. BUPIVACAINE [Concomitant]
     Active Substance: BUPIVACAINE
  14. EXPAREL [Suspect]
     Active Substance: BUPIVACAINE
     Indication: OFF LABEL USE
     Route: 014
     Dates: start: 20150507, end: 20150507
  15. MORPHINE [Concomitant]
     Active Substance: MORPHINE

REACTIONS (1)
  - Atrial fibrillation [None]

NARRATIVE: CASE EVENT DATE: 20150507
